FAERS Safety Report 12312918 (Version 1)
Quarter: 2016Q2

REPORT INFORMATION
  Report Type: Spontaneous
  Country: US (occurrence: None)
  Receive Date: 20160427
  Receipt Date: 20160427
  Transmission Date: 20160815
  Serious: Yes (Hospitalization)
  Sender: FDA-Public Use
  Company Number: None

PATIENT
  Age: 58 Year
  Sex: Female
  Weight: 68.04 kg

DRUGS (4)
  1. CALCIUM [Concomitant]
     Active Substance: CALCIUM
  2. LEVOTHYROXINE. [Suspect]
     Active Substance: LEVOTHYROXINE
     Indication: HYPOTHYROIDISM
     Dates: start: 20160112, end: 20160204
  3. SERTRALINE [Concomitant]
     Active Substance: SERTRALINE HYDROCHLORIDE
  4. DAILY VITAMIN [Concomitant]
     Active Substance: VITAMINS

REACTIONS (7)
  - Confusional state [None]
  - Mental disorder [None]
  - Amnesia [None]
  - Photophobia [None]
  - Therapy cessation [None]
  - Headache [None]
  - Ocular hyperaemia [None]

NARRATIVE: CASE EVENT DATE: 20160125
